FAERS Safety Report 4719362-0 (Version None)
Quarter: 2005Q3

REPORT INFORMATION
  Report Type: 
  Country: None (occurrence: None)
  Receive Date: 20050721
  Receipt Date: 20050711
  Transmission Date: 20060218
  Serious: Yes (Other)
  Sender: FDA-Public Use
  Company Number: US-JNJFOC-20050701991

PATIENT
  Age: 57 Year
  Sex: Female

DRUGS (10)
  1. REMICADE [Suspect]
     Route: 042
  2. REMICADE [Suspect]
     Route: 042
  3. REMICADE [Suspect]
     Indication: RHEUMATOID ARTHRITIS
     Route: 042
  4. PREDNISONE [Concomitant]
  5. VERAPAMIL [Concomitant]
     Route: 048
  6. RANITIDINE [Concomitant]
  7. METHOTREXATE [Concomitant]
  8. PERCOCET [Concomitant]
  9. PERCOCET [Concomitant]
  10. TYLENOL W/ CODEINE NO. 3 [Concomitant]
     Dosage: PRN

REACTIONS (6)
  - BLOOD PRESSURE DECREASED [None]
  - CHILLS [None]
  - INFUSION RELATED REACTION [None]
  - PO2 DECREASED [None]
  - PYREXIA [None]
  - TREMOR [None]
